FAERS Safety Report 11604211 (Version 1)
Quarter: 2015Q4

REPORT INFORMATION
  Report Type: Report from Study
  Country: US (occurrence: US)
  Receive Date: 20151007
  Receipt Date: 20151007
  Transmission Date: 20160304
  Serious: Yes (Hospitalization)
  Sender: FDA-Public Use
  Company Number: US-ABBVIE-15K-163-1471954-00

PATIENT
  Sex: Male

DRUGS (1)
  1. HUMIRA [Suspect]
     Active Substance: ADALIMUMAB
     Indication: ANKYLOSING SPONDYLITIS
     Route: 065
     Dates: start: 20150824

REACTIONS (6)
  - Inappropriate schedule of drug administration [Not Recovered/Not Resolved]
  - Adverse drug reaction [Unknown]
  - Anuria [Unknown]
  - Exposure to communicable disease [Unknown]
  - Renal failure [Recovered/Resolved with Sequelae]
  - Fear of injection [Not Recovered/Not Resolved]

NARRATIVE: CASE EVENT DATE: 2015
